FAERS Safety Report 9984364 (Version 1)
Quarter: 2014Q1

REPORT INFORMATION
  Report Type: Report from Study
  Country: US (occurrence: US)
  Receive Date: 20140307
  Receipt Date: 20140307
  Transmission Date: 20141002
  Serious: No
  Sender: FDA-Public Use
  Company Number: US-ABBVIE-13P-163-1182938-00

PATIENT
  Age: 50 Year
  Sex: Male

DRUGS (18)
  1. HUMIRA [Suspect]
     Indication: PSORIATIC ARTHROPATHY
     Dates: start: 20110506
  2. METHOTREXATE [Concomitant]
     Indication: PRODUCT USED FOR UNKNOWN INDICATION
     Dosage: 5PILLS WEEKLY;THE PATIENT STATED HE HAS ALWAYS TAKEN 5 PILLS WEEKLY
  3. OMEPRAZOLE [Concomitant]
     Indication: HAEMATOCHEZIA
  4. ZYRTEC [Concomitant]
     Indication: PRODUCT USED FOR UNKNOWN INDICATION
  5. MULTIVITAMIN [Concomitant]
     Indication: PRODUCT USED FOR UNKNOWN INDICATION
  6. RISPERDAL [Concomitant]
     Indication: SLEEP DISORDER
     Dosage: AT BEDTIME
  7. KETOCONAZOLE [Concomitant]
     Indication: PSORIASIS
     Dosage: APPLY TO GROIN AREA
  8. FLUOCINOLONE [Concomitant]
     Indication: PSORIASIS
     Dosage: APPLY TO AFFECTED AREA AND ON BODY EXCEPT GROIN AREA AT BEDTIME
  9. CLOBETASOL PROPIONATE [Concomitant]
     Indication: PSORIASIS
     Dosage: AFFECTED AREA
  10. HYDROCORTISONE 21-(DISODIUM PHOSPHATE) [Concomitant]
     Indication: PSORIASIS
     Dosage: AFFECTED AREA ON FACE
     Route: 055
  11. TRIAMCINOLONE ACETONIDE [Concomitant]
     Indication: PSORIASIS
     Dosage: AFFECTED AREA AT BEDTIME
  12. POVIDONE IODINE [Concomitant]
     Indication: PSORIASIS
     Dosage: TO BODY USE WITH CREAMS
  13. HYDROGEN PEROXIDE [Concomitant]
     Indication: PSORIASIS
  14. VOLTAREN [Concomitant]
     Indication: ARTHRITIS
  15. MUPIROCIN [Concomitant]
     Indication: PSORIASIS
     Dates: start: 20131018
  16. TOBRADEX [Concomitant]
     Indication: PRODUCT USED FOR UNKNOWN INDICATION
     Dosage: BECAUSE HE HAS YELLOWY DISCHARGE FROM HIS EYES
     Dates: start: 201302
  17. TYLENOL [Concomitant]
     Indication: PYREXIA
  18. ALEVE [Concomitant]
     Indication: PRODUCT USED FOR UNKNOWN INDICATION
     Dosage: TAKES ALEVE INSTEAD OF MOTRIN

REACTIONS (3)
  - Eye discharge [Not Recovered/Not Resolved]
  - Blister [Not Recovered/Not Resolved]
  - Insomnia [Not Recovered/Not Resolved]
